FAERS Safety Report 12061534 (Version 2)
Quarter: 2016Q1

REPORT INFORMATION
  Report Type: Spontaneous
  Country: US (occurrence: US)
  Receive Date: 20160210
  Receipt Date: 20160302
  Transmission Date: 20160526
  Serious: No
  Sender: FDA-Public Use
  Company Number: US-PFIZER INC-2016049493

PATIENT
  Age: 77 Year
  Sex: Female

DRUGS (1)
  1. REVATIO [Suspect]
     Active Substance: SILDENAFIL CITRATE
     Indication: LUNG DISORDER
     Dosage: 20 MG, 1X/DAY, ONE 20MG TABLET ONCE A DAY AT NIGHT TIME
     Route: 048
     Dates: start: 2015

REACTIONS (2)
  - Infection [Unknown]
  - Abdominal pain [Recovered/Resolved]
